FAERS Safety Report 23694995 (Version 1)
Quarter: 2024Q2

REPORT INFORMATION
  Report Type: Spontaneous
  Country: US (occurrence: US)
  Receive Date: 20240402
  Receipt Date: 20240402
  Transmission Date: 20240716
  Serious: No
  Sender: FDA-Public Use
  Company Number: US-AMGEN-USASP2024064678

PATIENT
  Age: 62 Year
  Sex: Male

DRUGS (1)
  1. REPATHA [Suspect]
     Active Substance: EVOLOCUMAB
     Indication: Product used for unknown indication
     Dosage: 140 MILLIGRAM, ASSUMED AS LABEL -EVERY 2 WEEKS., BUT UNABLE TO CONFIRM WITH PRESCRIBER
     Route: 058
     Dates: start: 20240324

REACTIONS (3)
  - Dysphagia [Unknown]
  - Vomiting [Unknown]
  - Abdominal rigidity [Unknown]

NARRATIVE: CASE EVENT DATE: 20240324
